FAERS Safety Report 22251244 (Version 1)
Quarter: 2023Q2

REPORT INFORMATION
  Report Type: Spontaneous
  Country: CN (occurrence: CN)
  Receive Date: 20230425
  Receipt Date: 20230425
  Transmission Date: 20230721
  Serious: Yes (Hospitalization)
  Sender: FDA-Public Use
  Company Number: CN-PFIZER INC-PV202300073752

PATIENT
  Age: 7 Year
  Sex: Male

DRUGS (3)
  1. MEDROL [Suspect]
     Active Substance: METHYLPREDNISOLONE
     Indication: Seizure
     Dosage: 4 MG, 1X/DAY
     Route: 048
     Dates: start: 20230308, end: 20230412
  2. STANOZOLOL [Suspect]
     Active Substance: STANOZOLOL
     Dosage: UNK
  3. CYCLOSPORINE [Suspect]
     Active Substance: CYCLOSPORINE
     Dosage: UNK

REACTIONS (4)
  - Seizure [Unknown]
  - Cushingoid [Unknown]
  - Face oedema [Unknown]
  - Off label use [Unknown]

NARRATIVE: CASE EVENT DATE: 20230308
